FAERS Safety Report 5395369-8 (Version None)
Quarter: 2007Q3

REPORT INFORMATION
  Report Type: 
  Country: None (occurrence: None)
  Receive Date: 20070724
  Receipt Date: 20070716
  Transmission Date: 20080115
  Serious: Yes (Hospitalization)
  Sender: FDA-Public Use
  Company Number: CA-MERCK-0707CAN00061

PATIENT
  Age: 40 Year
  Sex: Male

DRUGS (1)
  1. STROMECTOL [Suspect]
     Indication: STRONGYLOIDIASIS
     Route: 048
     Dates: start: 20070601

REACTIONS (2)
  - DIABETIC KETOACIDOSIS [None]
  - MALAISE [None]
